FAERS Safety Report 4565748-7 (Version None)
Quarter: 2005Q1

REPORT INFORMATION
  Report Type: 
  Country: None (occurrence: None)
  Receive Date: 20050126
  Receipt Date: 20050104
  Transmission Date: 20050727
  Serious: Yes (Disabling)
  Sender: FDA-Public Use
  Company Number: 2005AC00022

PATIENT
  Age: 57 Year
  Sex: Male
  Weight: 40 kg

DRUGS (10)
  1. BUPIVACAINE [Suspect]
     Indication: ANAESTHESIA
     Dosage: 12 MG IT
     Route: 037
  2. MORPHINE [Suspect]
     Indication: ANAESTHESIA
     Dosage: 0.2 MG
  3. MIDAZOLAM HCL [Concomitant]
  4. FENTANYL [Concomitant]
  5. CEFAZOLIN [Concomitant]
  6. EPHEDRINE SUL CAP [Concomitant]
  7. PHENYLEPHRINE [Concomitant]
  8. LISINOPRIL [Concomitant]
  9. OXYCODONE AND ASPIRIN [Concomitant]
  10. IBUPROFEN [Concomitant]

REACTIONS (11)
  - ANAEMIA POSTOPERATIVE [None]
  - ANAESTHETIC COMPLICATION [None]
  - DEPRESSED LEVEL OF CONSCIOUSNESS [None]
  - EMBOLISM [None]
  - HYPERHIDROSIS [None]
  - HYPOTENSION [None]
  - HYPOVOLAEMIA [None]
  - INCISION SITE HAEMORRHAGE [None]
  - POST PROCEDURAL COMPLICATION [None]
  - PROCEDURAL HYPOTENSION [None]
  - SPINAL CORD INFARCTION [None]
